FAERS Safety Report 7814231-1 (Version None)
Quarter: 2011Q4

REPORT INFORMATION
  Report Type: 
  Country: None (occurrence: None)
  Receive Date: 20111012
  Receipt Date: 20110930
  Transmission Date: 20120403
  Serious: Yes (Hospitalization)
  Sender: FDA-Public Use
  Company Number: 1000024549

PATIENT
  Age: 67 Year
  Sex: Male
  Weight: 45 kg

DRUGS (4)
  1. KEPPRA [Concomitant]
  2. LISINOPRIL [Concomitant]
  3. ROFLUMILAST (ROFLUMILAST) (TABLETS) [Suspect]
     Indication: CHRONIC OBSTRUCTIVE PULMONARY DISEASE
     Dosage: 500 MCG, ORAL
     Route: 048
     Dates: start: 20110126, end: 20110930
  4. VALPROATE SODIUM [Concomitant]

REACTIONS (1)
  - GENERALISED NON-CONVULSIVE EPILEPSY [None]
